FAERS Safety Report 15533649 (Version 1)
Quarter: 2018Q4

REPORT INFORMATION
  Report Type: Report from Study
  Country: GB (occurrence: GB)
  Receive Date: 20181019
  Receipt Date: 20181019
  Transmission Date: 20190205
  Serious: Yes (Hospitalization)
  Sender: FDA-Public Use
  Company Number: GB-PFIZER INC-2018418028

PATIENT
  Age: 19 Year
  Sex: Female

DRUGS (1)
  1. SIROLIMUS. [Suspect]
     Active Substance: SIROLIMUS
     Indication: ACRAL OVERGROWTH
     Dosage: 1 MG, DAILY

REACTIONS (2)
  - Cellulitis [Unknown]
  - Pelvic inflammatory disease [Unknown]
